FAERS Safety Report 7107966-X (Version None)
Quarter: 2010Q4

REPORT INFORMATION
  Report Type: 
  Country: None (occurrence: None)
  Receive Date: 20101105
  Receipt Date: 20101026
  Transmission Date: 20110411
  Serious: Yes (Hospitalization, Other)
  Sender: FDA-Public Use
  Company Number: 2010SP046106

PATIENT
  Age: 67 Year
  Sex: Female

DRUGS (2)
  1. SAPHRIS [Suspect]
     Indication: BIPOLAR DISORDER
     Dosage: 5 MG;ONCE;SL
     Route: 060
     Dates: start: 20100726, end: 20100726
  2. LITHIUM CARBONATE [Concomitant]

REACTIONS (16)
  - AORTIC ARTERIOSCLEROSIS [None]
  - AORTIC VALVE INCOMPETENCE [None]
  - BLOOD GLUCOSE INCREASED [None]
  - BRADYCARDIA [None]
  - BRAIN NATRIURETIC PEPTIDE INCREASED [None]
  - CEREBRAL ATROPHY [None]
  - CONFUSIONAL STATE [None]
  - CONSTIPATION [None]
  - DIASTOLIC DYSFUNCTION [None]
  - DYSARTHRIA [None]
  - DYSPHAGIA [None]
  - HAEMATOCRIT DECREASED [None]
  - HALLUCINATION [None]
  - PALLOR [None]
  - SEDATION [None]
  - URINARY TRACT INFECTION [None]
